FAERS Safety Report 8252907-5 (Version None)
Quarter: 2012Q2

REPORT INFORMATION
  Report Type: 
  Country: None (occurrence: None)
  Receive Date: 20120402
  Receipt Date: 20120125
  Transmission Date: 20120825
  Serious: No
  Sender: FDA-Public Use
  Company Number: US-ABBOTT-12P-163-0897607-00

PATIENT
  Sex: Male
  Weight: 95.34 kg

DRUGS (5)
  1. ZYRTEC [Concomitant]
     Indication: HYPERSENSITIVITY
  2. SONATA [Concomitant]
     Indication: INSOMNIA
  3. DIOVAN [Concomitant]
     Indication: HYPERTENSION
  4. ANDROGEL [Suspect]
     Indication: BLOOD TESTOSTERONE DECREASED
     Dates: start: 20101101
  5. FLONASE [Concomitant]
     Indication: SINUS CONGESTION

REACTIONS (3)
  - SLEEP DISORDER [None]
  - FATIGUE [None]
  - BLOOD TESTOSTERONE DECREASED [None]
